FAERS Safety Report 7972067-5 (Version None)
Quarter: 2011Q4

REPORT INFORMATION
  Report Type: 
  Country: None (occurrence: None)
  Receive Date: 20111212
  Receipt Date: 20111201
  Transmission Date: 20120403
  Serious: Yes (Other)
  Sender: FDA-Public Use
  Company Number: BE-ASTRAZENECA-2011SE15636

PATIENT
  Sex: Male
  Weight: 2.4 kg

DRUGS (2)
  1. SEROQUEL [Suspect]
     Route: 064
  2. ANTIDEPRESSANTS [Concomitant]
     Route: 064

REACTIONS (2)
  - PSYCHOMOTOR SKILLS IMPAIRED [None]
  - PREMATURE BABY [None]
